FAERS Safety Report 5331095-9 (Version None)
Quarter: 2007Q2

REPORT INFORMATION
  Report Type: 
  Country: None (occurrence: None)
  Receive Date: 20070518
  Receipt Date: 20070518
  Transmission Date: 20071010
  Serious: Yes (Hospitalization)
  Sender: FDA-Public Use
  Company Number: None

PATIENT
  Age: 65 Year
  Sex: Female
  Weight: 43.5453 kg

DRUGS (18)
  1. CETUXIMAB [Suspect]
     Indication: NON-SMALL CELL LUNG CANCER
     Dosage: 340 MG WEEKLY/ IV
     Route: 042
     Dates: start: 20070201, end: 20070501
  2. SYNTHROID [Concomitant]
  3. FOLIC ACID [Concomitant]
  4. PROTONIX [Concomitant]
  5. ZOCOR [Concomitant]
  6. ATIVAN [Concomitant]
  7. DILAUDID [Concomitant]
  8. FENTANYL TRANSDERMAL SYSTEM [Concomitant]
  9. PAXIL [Concomitant]
  10. COLACE [Concomitant]
  11. SENDKOT [Concomitant]
  12. LACTOLOSE [Concomitant]
  13. PEPTOBISMOL [Concomitant]
  14. BISICODIL [Concomitant]
  15. MEGACE [Concomitant]
  16. COMPAZINE [Concomitant]
  17. EXTRA STRENGTH TYLENOL [Concomitant]
  18. PREPARATION H CREAM [Concomitant]

REACTIONS (1)
  - DEEP VEIN THROMBOSIS [None]
